FAERS Safety Report 17897637 (Version 9)
Quarter: 2020Q4

REPORT INFORMATION
  Report Type: Report from Study
  Country: US (occurrence: US)
  Receive Date: 20200615
  Receipt Date: 20201216
  Transmission Date: 20210113
  Serious: Yes (Other)
  Sender: FDA-Public Use
  Company Number: NVSC2020US166719

PATIENT
  Age: 1 Year
  Sex: Female
  Weight: 13.1 kg

DRUGS (6)
  1. PREDNISOLONE. [Concomitant]
     Active Substance: PREDNISOLONE
     Indication: SPINAL MUSCULAR ATROPHY
     Dosage: 12.4 MG
     Route: 048
     Dates: start: 20200601, end: 20200702
  2. PREDNISOLONE. [Concomitant]
     Active Substance: PREDNISOLONE
     Dosage: 1 MG/KG
     Route: 065
     Dates: start: 20200604, end: 20200702
  3. PREDNISOLONE. [Concomitant]
     Active Substance: PREDNISOLONE
     Dosage: 0.1 ML
     Route: 048
     Dates: start: 20200702, end: 20200812
  4. ORAPRED [Concomitant]
     Active Substance: PREDNISOLONE SODIUM PHOSPHATE
     Indication: PRODUCT USED FOR UNKNOWN INDICATION
     Dosage: 1 MG/KG, QD
     Route: 065
     Dates: end: 20200812
  5. ZOLGENSMA [Suspect]
     Active Substance: ONASEMNOGENE ABEPARVOVEC-XIOI
     Indication: SPINAL MUSCULAR ATROPHY
     Dosage: UNK UNK, ONCE/SINGLE
     Route: 042
     Dates: start: 20200602, end: 20200602
  6. PREDNISOLONE. [Concomitant]
     Active Substance: PREDNISOLONE
     Dosage: 2 MG/KG
     Route: 048
     Dates: start: 20200602

REACTIONS (7)
  - Troponin increased [Recovered/Resolved]
  - Vomiting [Recovered/Resolved]
  - Aspartate aminotransferase increased [Recovering/Resolving]
  - Liver function test increased [Unknown]
  - Liver function test increased [Recovered/Resolved]
  - Alanine aminotransferase increased [Recovering/Resolving]
  - Mood altered [Recovered/Resolved]

NARRATIVE: CASE EVENT DATE: 20200603
